FAERS Safety Report 17026046 (Version 1)
Quarter: 2019Q4

REPORT INFORMATION
  Report Type: Spontaneous
  Country: US (occurrence: US)
  Receive Date: 20191112
  Receipt Date: 20191112
  Transmission Date: 20200122
  Serious: Yes (Other)
  Sender: FDA-Public Use
  Company Number: None

PATIENT
  Age: 80 Year
  Sex: Female
  Weight: 57.15 kg

DRUGS (7)
  1. VITAMIN  C 1000 MG [Concomitant]
  2. ONE-A-DAY VITAMIN [Concomitant]
  3. CRANBERRY CAPSULES [Concomitant]
  4. BACTRIM [Suspect]
     Active Substance: SULFAMETHOXAZOLE\TRIMETHOPRIM
  5. LEVOTHYROXINE. [Concomitant]
     Active Substance: LEVOTHYROXINE
  6. SCULPTRA [Suspect]
     Active Substance: POLYLACTIDE, L-
     Indication: DERMAL FILLER INJECTION
  7. ZOSYN [Suspect]
     Active Substance: PIPERACILLIN SODIUM\TAZOBACTAM SODIUM

REACTIONS (5)
  - Urinary tract infection [None]
  - Visual impairment [None]
  - Induration [None]
  - Drug interaction [None]
  - Swelling face [None]

NARRATIVE: CASE EVENT DATE: 20190707
